FAERS Safety Report 17718825 (Version 2)
Quarter: 2020Q2

REPORT INFORMATION
  Report Type: Spontaneous
  Country: US (occurrence: US)
  Receive Date: 20200428
  Receipt Date: 20200609
  Transmission Date: 20200714
  Serious: No
  Sender: FDA-Public Use
  Company Number: US-SHIRE-US202014433

PATIENT
  Sex: Female

DRUGS (1)
  1. LIALDA [Suspect]
     Active Substance: MESALAMINE
     Indication: COLITIS ULCERATIVE
     Dosage: UNK, 4X/DAY:QID
     Route: 065
     Dates: start: 2013

REACTIONS (5)
  - Adverse event [Unknown]
  - Intentional product use issue [Unknown]
  - Unevaluable event [Unknown]
  - Inability to afford medication [Unknown]
  - Product availability issue [Unknown]
